FAERS Safety Report 15061330 (Version 1)
Quarter: 2018Q2

REPORT INFORMATION
  Report Type: Spontaneous
  Country: US (occurrence: US)
  Receive Date: 20180625
  Receipt Date: 20180625
  Transmission Date: 20180711
  Serious: No
  Sender: FDA-Public Use
  Company Number: US-ROCHE-2041629

PATIENT
  Age: 73 Year
  Sex: Female
  Weight: 44.45 kg

DRUGS (4)
  1. XELODA [Suspect]
     Active Substance: CAPECITABINE
     Indication: PRODUCT USED FOR UNKNOWN INDICATION
     Route: 065
     Dates: start: 201603, end: 201702
  2. IBRANCE [Suspect]
     Active Substance: PALBOCICLIB
     Indication: BREAST CANCER METASTATIC
     Dosage: 120MG TAB FOR 21 DAY AND OFF FOR 1 WEEK
     Route: 048
     Dates: start: 201704
  3. EFFEXOR [Concomitant]
     Active Substance: VENLAFAXINE HYDROCHLORIDE
     Route: 065
  4. EFFEXOR [Concomitant]
     Active Substance: VENLAFAXINE HYDROCHLORIDE
     Indication: DEPRESSION
     Route: 065
     Dates: start: 2011

REACTIONS (7)
  - Immunosuppression [Unknown]
  - Ill-defined disorder [Unknown]
  - Pain of skin [Unknown]
  - Skin exfoliation [Unknown]
  - Post-traumatic stress disorder [Recovered/Resolved]
  - Fatigue [Unknown]
  - Stomatitis [Unknown]

NARRATIVE: CASE EVENT DATE: 201704
